FAERS Safety Report 6531317-2 (Version None)
Quarter: 2010Q1

REPORT INFORMATION
  Report Type: 
  Country: None (occurrence: None)
  Receive Date: 20100108
  Receipt Date: 20100105
  Transmission Date: 20100710
  Serious: Yes (Other)
  Sender: FDA-Public Use
  Company Number: GB-PERRIGO-10GB006023

PATIENT
  Age: 45 Year
  Sex: Male

DRUGS (4)
  1. RANITIDINE HYDROCHLORIDE 16028/0122 83.75 MG [Suspect]
     Indication: DRUG USE FOR UNKNOWN INDICATION
     Dosage: UNK
     Route: 048
  2. DARUNAVIR [Suspect]
     Indication: HIV INFECTION
     Dosage: 800 MG, QD
     Route: 048
  3. OMEPRAZOLE [Concomitant]
     Indication: DRUG USE FOR UNKNOWN INDICATION
     Dosage: UNK
     Route: 048
  4. RITONAVIR [Concomitant]
     Indication: HIV INFECTION
     Dosage: 100 MG, QD
     Route: 048
     Dates: start: 20080201

REACTIONS (2)
  - CONTUSION [None]
  - THROMBOCYTOPENIA [None]
